FAERS Safety Report 5774506-7 (Version None)
Quarter: 2008Q2

REPORT INFORMATION
  Report Type: 
  Country: None (occurrence: None)
  Receive Date: 20080616
  Receipt Date: 20080606
  Transmission Date: 20081010
  Serious: Yes (Other)
  Sender: FDA-Public Use
  Company Number: GB-PFIZER INC-2008048378

PATIENT
  Sex: Male
  Weight: 62 kg

DRUGS (4)
  1. IRINOTECAN HCL [Suspect]
     Indication: CHEMOTHERAPY
     Route: 042
     Dates: start: 20080521, end: 20080521
  2. ATROPINE [Concomitant]
     Route: 058
  3. DEXAMETHASONE TAB [Concomitant]
     Route: 048
  4. ONDANSETRON [Concomitant]
     Route: 042

REACTIONS (3)
  - DYSARTHRIA [None]
  - MALAISE [None]
  - VOMITING [None]
